FAERS Safety Report 6194735-0 (Version None)
Quarter: 2009Q2

REPORT INFORMATION
  Report Type: 
  Country: None (occurrence: None)
  Receive Date: 20090515
  Receipt Date: 20090511
  Transmission Date: 20091009
  Serious: Yes (Other)
  Sender: FDA-Public Use
  Company Number: 2009157529

PATIENT
  Age: 3 Week
  Sex: Female

DRUGS (2)
  1. FRAGMIN [Suspect]
     Indication: HYPERCOAGULATION
     Dosage: 5000, TRANSMAMMARY
     Route: 063
     Dates: start: 20081230
  2. FRAGMIN [Suspect]
     Dosage: 5000, TRANSPLACENTAL
     Route: 064
     Dates: start: 20080101

REACTIONS (4)
  - CAESAREAN SECTION [None]
  - DRUG EXPOSURE VIA BREAST MILK [None]
  - HYPERBILIRUBINAEMIA NEONATAL [None]
  - MATERNAL DRUGS AFFECTING FOETUS [None]
